FAERS Safety Report 4555971-X (Version None)
Quarter: 2005Q1

REPORT INFORMATION
  Report Type: 
  Country: None (occurrence: None)
  Receive Date: 20050118
  Receipt Date: 20041029
  Transmission Date: 20050727
  Serious: No
  Sender: FDA-Public Use
  Company Number: A03200403629

PATIENT
  Sex: Male

DRUGS (2)
  1. UROXATRAL [Suspect]
     Indication: URINE FLOW DECREASED
     Dosage: ORAL
     Route: 048
  2. FINASTERIDE [Concomitant]

REACTIONS (1)
  - ANXIETY [None]
